FAERS Safety Report 6215546-3 (Version None)
Quarter: 2009Q2

REPORT INFORMATION
  Report Type: 
  Country: None (occurrence: None)
  Receive Date: 20090605
  Receipt Date: 20080131
  Transmission Date: 20091009
  Serious: Yes (Hospitalization, Other)
  Sender: FDA-Public Use
  Company Number: US-ASTRAZENECA-2007UW19654

PATIENT
  Age: 15527 Day
  Sex: Female
  Weight: 65.3 kg

DRUGS (18)
  1. SEROQUEL [Suspect]
     Indication: SLEEP DISORDER
     Route: 048
     Dates: start: 20010101
  2. SEROQUEL [Suspect]
     Indication: BIPOLAR DISORDER
     Route: 048
     Dates: start: 20010101
  3. SEROQUEL [Suspect]
     Indication: DEPRESSION
     Route: 048
     Dates: start: 20010101
  4. SEROQUEL [Suspect]
     Indication: ANXIETY
     Route: 048
     Dates: start: 20010101
  5. SEROQUEL [Suspect]
     Indication: AGITATION
     Route: 048
     Dates: start: 20010101
  6. SEROQUEL [Suspect]
     Dosage: 25-300 MG
     Route: 048
     Dates: start: 20040316
  7. SEROQUEL [Suspect]
     Dosage: 25-300 MG
     Route: 048
     Dates: start: 20040316
  8. SEROQUEL [Suspect]
     Dosage: 25-300 MG
     Route: 048
     Dates: start: 20040316
  9. SEROQUEL [Suspect]
     Dosage: 25-300 MG
     Route: 048
     Dates: start: 20040316
  10. SEROQUEL [Suspect]
     Dosage: 25-300 MG
     Route: 048
     Dates: start: 20040316
  11. CLOZARIL [Concomitant]
     Route: 048
     Dates: start: 20010101, end: 20070101
  12. ZYPREXA [Concomitant]
     Route: 048
     Dates: start: 20050101
  13. ZOLOFT [Concomitant]
     Route: 048
     Dates: start: 20010101, end: 20050101
  14. ZOLOFT [Concomitant]
     Route: 048
     Dates: start: 20040218
  15. OXYCONTIN [Concomitant]
     Route: 048
     Dates: start: 20040315
  16. XANAX [Concomitant]
     Route: 048
     Dates: start: 20040315
  17. DESYREL [Concomitant]
     Route: 048
     Dates: start: 20040315
  18. SYNTHROID [Concomitant]
     Route: 048
     Dates: start: 20040315

REACTIONS (5)
  - DIABETES MELLITUS [None]
  - DIABETIC COMA [None]
  - DRUG DETOXIFICATION [None]
  - FEMUR FRACTURE [None]
  - PELVIC FRACTURE [None]
